FAERS Safety Report 8218441-3 (Version None)
Quarter: 2012Q1

REPORT INFORMATION
  Report Type: 
  Country: None (occurrence: None)
  Receive Date: 20120306
  Receipt Date: 20111130
  Transmission Date: 20120608
  Serious: No
  Sender: FDA-Public Use
  Company Number: 1000026046

PATIENT
  Age: 69 Year
  Sex: Male

DRUGS (12)
  1. SYMBICORT (BUDESONIDE W/ FORMOTEROL FUMARATE) (BUDESONIDE W/FORMOTEROL [Concomitant]
  2. PRAVASTATIN [Concomitant]
  3. DALIRESP [Suspect]
     Indication: CHRONIC OBSTRUCTIVE PULMONARY DISEASE
     Dosage: 500 MCG (500 MCG, 1 IN 1 D), ORAL
     Route: 048
     Dates: start: 20111127
  4. OMEGA D3 (FISH OIL, VITAMIN D3) [Suspect]
  5. PROAIR (FLUTICASONE PROPIONATE) (FLUTICASONE PROPIONATE) [Concomitant]
  6. BICALUTAMIDE (BICALUTAMIDE) (BICALUTAMIDE) [Concomitant]
  7. PREDNISONE [Concomitant]
  8. DALIRESP [Suspect]
     Indication: CHRONIC OBSTRUCTIVE PULMONARY DISEASE
     Dosage: 500 MCG (500 MCG, 1 IN 1 D), ORAL
     Route: 048
     Dates: start: 20111101, end: 20111101
  9. TAMSULOSIN (TAMSULOSIN) (TAMSULOSIN) [Concomitant]
  10. VENTOLIN (ALBUTEROL) (ALBUTEROL) [Concomitant]
  11. LUPRON (LEUPRORELIN ACETATE) (LEUPRORELIN ACETATE) [Concomitant]
  12. MUCINEX (GUAIFENESIN), (GUAIFENESIN) [Concomitant]

REACTIONS (7)
  - TOOTHACHE [None]
  - DYSPNOEA [None]
  - ANXIETY [None]
  - DRUG INTERACTION [None]
  - DIZZINESS [None]
  - CHEST PAIN [None]
  - COLD SWEAT [None]
